FAERS Safety Report 4666614-9 (Version None)
Quarter: 2005Q2

REPORT INFORMATION
  Report Type: 
  Country: None (occurrence: None)
  Receive Date: 20050519
  Receipt Date: 20050211
  Transmission Date: 20051028
  Serious: Yes (Hospitalization)
  Sender: FDA-Public Use
  Company Number: PHBS2005AT02387

PATIENT
  Age: 78 Year
  Sex: Male

DRUGS (4)
  1. AREDIA [Suspect]
     Indication: OSTEOPOROSIS
     Dosage: 90 MG, QMO
     Route: 042
     Dates: start: 20010101
  2. CLAVERSAL [Concomitant]
  3. SEROPRAM [Concomitant]
     Dosage: 20 MG/D
     Dates: start: 20030101
  4. MIRTABENE [Concomitant]
     Dosage: 30 MG/D
     Dates: start: 20030101

REACTIONS (2)
  - OSTEONECROSIS [None]
  - PYREXIA [None]
